FAERS Safety Report 4555305-0 (Version None)
Quarter: 2004Q4

REPORT INFORMATION
  Report Type: 
  Country: None (occurrence: None)
  Receive Date: 20041227
  Receipt Date: 20040611
  Transmission Date: 20050328
  Serious: Yes (Hospitalization)
  Sender: FDA-Public Use
  Company Number: PRA079352

PATIENT
  Age: 57 Year
  Sex: Female

DRUGS (4)
  1. ARANESP [Suspect]
     Indication: ANAEMIA OF MALIGNANT DISEASE
     Dosage: 500 MCG, 1 IN 3 WEEKS, SC
     Route: 058
     Dates: start: 20040602
  2. NEULASTA [Suspect]
     Indication: CHEMOTHERAPY
  3. PACLITAXEL [Suspect]
  4. CARBOPLATIN [Suspect]

REACTIONS (4)
  - BONE PAIN [None]
  - HYPOKALAEMIA [None]
  - ORAL CANDIDIASIS [None]
  - PYREXIA [None]
